FAERS Safety Report 24194320 (Version 4)
Quarter: 2025Q1

REPORT INFORMATION
  Report Type: Report from Study
  Country: CA (occurrence: CA)
  Receive Date: 20240809
  Receipt Date: 20250320
  Transmission Date: 20250409
  Serious: Yes (Other)
  Sender: SANDOZ
  Company Number: CA-SANDOZ-SDZ2024CA071311

PATIENT
  Age: 60 Year
  Sex: Male

DRUGS (4)
  1. HYRIMOZ [Suspect]
     Active Substance: ADALIMUMAB-ADAZ
     Indication: Psoriatic arthropathy
     Dosage: 40 MG, Q2W
     Route: 058
     Dates: start: 20240704
  2. ASPIRIN [Concomitant]
     Active Substance: ASPIRIN
     Indication: Cardiac fibrillation
     Route: 065
  3. ASPIRIN [Concomitant]
     Active Substance: ASPIRIN
     Indication: Cardiac fibrillation
     Route: 065
  4. METHOTREXATE [Concomitant]
     Active Substance: METHOTREXATE
     Indication: Product used for unknown indication
     Route: 065

REACTIONS (10)
  - Type 2 diabetes mellitus [Unknown]
  - General physical health deterioration [Unknown]
  - Malaise [Unknown]
  - Respiration abnormal [Unknown]
  - Injection site haemorrhage [Unknown]
  - Sinusitis [Unknown]
  - Psoriasis [Unknown]
  - Nasopharyngitis [Recovering/Resolving]
  - Therapeutic product effect decreased [Unknown]
  - Circumstance or information capable of leading to medication error [Unknown]

NARRATIVE: CASE EVENT DATE: 20240804
